FAERS Safety Report 22156851 (Version 2)
Quarter: 2023Q2

REPORT INFORMATION
  Report Type: Spontaneous
  Country: US (occurrence: US)
  Receive Date: 20230330
  Receipt Date: 20230418
  Transmission Date: 20230722
  Serious: Yes (Hospitalization)
  Sender: FDA-Public Use
  Company Number: US-RIGEL Pharmaceuticals, INC-2023FOS000332

PATIENT
  Sex: Female
  Weight: 77.098 kg

DRUGS (20)
  1. TAVALISSE [Suspect]
     Active Substance: FOSTAMATINIB
     Indication: Immune thrombocytopenia
     Dosage: 100 MG, BID
     Route: 048
     Dates: start: 20230314
  2. AZELASTINE [Concomitant]
     Active Substance: AZELASTINE
     Indication: Product used for unknown indication
     Dosage: UNK, QD
     Route: 065
  3. CELLCEPT [Concomitant]
     Active Substance: MYCOPHENOLATE MOFETIL
     Indication: Product used for unknown indication
     Dosage: 250 MG, BID
     Route: 065
  4. CITALOPRAM [Concomitant]
     Active Substance: CITALOPRAM HYDROBROMIDE
     Indication: Product used for unknown indication
     Dosage: 20 MG, QD
     Route: 065
  5. FEXOFENADINE [Concomitant]
     Active Substance: FEXOFENADINE HYDROCHLORIDE
     Indication: Product used for unknown indication
     Dosage: 180 MG, QD
     Route: 065
  6. FINASTERIDE [Concomitant]
     Active Substance: FINASTERIDE
     Indication: Product used for unknown indication
     Dosage: 1 MG, QD
     Route: 065
  7. FLUTICASONE PROPIONATE [Concomitant]
     Active Substance: FLUTICASONE PROPIONATE
     Indication: Product used for unknown indication
     Dosage: UNK, QD
     Route: 065
  8. LEVOTHYROXINE [Concomitant]
     Active Substance: LEVOTHYROXINE
     Indication: Product used for unknown indication
     Dosage: 75 MICROGRAM, QD
     Route: 065
  9. MINOXIDIL [Concomitant]
     Active Substance: MINOXIDIL
     Indication: Product used for unknown indication
     Dosage: 2.5 MG, QD
     Route: 065
  10. MONTELUKAST [Concomitant]
     Active Substance: MONTELUKAST SODIUM
     Indication: Product used for unknown indication
     Dosage: 10 MG, QD
     Route: 065
  11. NPLATE [Concomitant]
     Active Substance: ROMIPLOSTIM
     Indication: Product used for unknown indication
     Dosage: WEEKLY
     Route: 065
  12. OLMESARTAN [Concomitant]
     Active Substance: OLMESARTAN
     Indication: Product used for unknown indication
     Dosage: 40 MG, QD
     Route: 065
  13. OMEGA-3 FATTY ACIDS [Concomitant]
     Active Substance: OMEGA-3 FATTY ACIDS
     Indication: Product used for unknown indication
     Dosage: UNK, QD
     Route: 065
  14. ROSUVASTATIN [Concomitant]
     Active Substance: ROSUVASTATIN
     Indication: Product used for unknown indication
     Dosage: 10 MG, QD
     Route: 065
  15. TRIAMTERENE AND HYDROCHLOROTHIAZIDE [Concomitant]
     Active Substance: HYDROCHLOROTHIAZIDE\TRIAMTERENE
     Indication: Product used for unknown indication
     Dosage: 37.5 -25 MG, QD
     Route: 065
  16. VITAMIN C [Concomitant]
     Active Substance: ASCORBIC ACID
     Indication: Product used for unknown indication
     Dosage: 500 MG, QD
     Route: 065
  17. VITAMINS [Concomitant]
     Active Substance: VITAMINS
     Indication: Product used for unknown indication
     Dosage: UNK, QD
     Route: 065
  18. ZINC [Concomitant]
     Active Substance: ZINC
     Indication: Product used for unknown indication
     Dosage: 50 MG, QD
     Route: 065
  19. ZINC [Concomitant]
     Active Substance: ZINC
     Dosage: 220 MG, QD
     Route: 065
  20. MAGNESIUM [Concomitant]
     Active Substance: MAGNESIUM
     Indication: Product used for unknown indication
     Dosage: 200 MG, QD

REACTIONS (6)
  - Platelet count decreased [Unknown]
  - Haemoglobin decreased [Unknown]
  - Haemolysis [Unknown]
  - Melaena [Unknown]
  - Anaemia [Unknown]
  - Unevaluable event [Unknown]

NARRATIVE: CASE EVENT DATE: 20230101
